FAERS Safety Report 24167671 (Version 1)
Quarter: 2024Q3

REPORT INFORMATION
  Report Type: Spontaneous
  Country: US (occurrence: None)
  Receive Date: 20240801
  Receipt Date: 20240801
  Transmission Date: 20241016
  Serious: Yes (Other)
  Sender: Public
  Company Number: None

PATIENT
  Age: 70 Year
  Sex: Female
  Weight: 93.4 kg

DRUGS (1)
  1. FERRLECIT [Suspect]
     Active Substance: SODIUM FERRIC GLUCONATE COMPLEX
     Dosage: 125 MG INTRAVENOUS DRIP
     Route: 041

REACTIONS (4)
  - Infusion related reaction [None]
  - Dizziness [None]
  - Hypotension [None]
  - Hyperhidrosis [None]
